FAERS Safety Report 7784970-X (Version None)
Quarter: 2011Q3

REPORT INFORMATION
  Report Type: 
  Country: None (occurrence: None)
  Receive Date: 20110928
  Receipt Date: 20110830
  Transmission Date: 20111222
  Serious: Yes (Hospitalization, Other)
  Sender: FDA-Public Use
  Company Number: PHHY2011CA76660

PATIENT
  Sex: Female

DRUGS (3)
  1. PREDNISONE [Concomitant]
  2. ZOLEDRONOC ACID [Suspect]
     Indication: OSTEOPOROSIS
     Dosage: UNK
     Route: 042
     Dates: start: 20100325
  3. METHOTREXATE [Concomitant]

REACTIONS (1)
  - UPPER LIMB FRACTURE [None]
